FAERS Safety Report 8439645-0 (Version None)
Quarter: 2012Q2

REPORT INFORMATION
  Report Type: 
  Country: None (occurrence: None)
  Receive Date: 20120606
  Receipt Date: 20120529
  Transmission Date: 20120825
  Serious: Yes (Hospitalization)
  Sender: FDA-Public Use
  Company Number: 2012SP029232

PATIENT
  Age: 64 Year
  Sex: Female

DRUGS (5)
  1. PEG-INTRON [Suspect]
     Indication: HEPATITIS C
     Dosage: 1.5 MCG/KG, QW, SC
     Route: 058
     Dates: start: 20120403
  2. ALLEGRA [Concomitant]
  3. BETAMETHASONE SODIUM PHOSPHATE [Concomitant]
  4. REBETOL [Suspect]
     Indication: HEPATITIS C
     Dosage: 600 MG, QD, PO
     Route: 048
     Dates: start: 20120403
  5. TELAVIC (ANTIVIRALS NOS) [Suspect]
     Indication: HEPATITIS C
     Dosage: 2250 MG, QD, PO
     Route: 048
     Dates: start: 20120403, end: 20120406

REACTIONS (3)
  - ERYTHEMA [None]
  - ASCITES [None]
  - PRURITUS [None]
